FAERS Safety Report 11861586 (Version 2)
Quarter: 2016Q3

REPORT INFORMATION
  Report Type: Spontaneous
  Country: US (occurrence: US)
  Receive Date: 20151222
  Receipt Date: 20160705
  Transmission Date: 20161109
  Serious: Yes (Other)
  Sender: FDA-Public Use
  Company Number: US-PFIZER INC-2015446735

PATIENT
  Sex: Female

DRUGS (3)
  1. DEPO-MEDROL [Suspect]
     Active Substance: METHYLPREDNISOLONE ACETATE
     Dosage: 80 MG, SINGLE
     Route: 014
     Dates: start: 20151208
  2. METHOTREXATE SODIUM. [Suspect]
     Active Substance: METHOTREXATE SODIUM
     Indication: RHEUMATOID ARTHRITIS
     Dosage: 17.5 MG/ 7 ML WEEKLY
  3. REMICADE [Suspect]
     Active Substance: INFLIXIMAB
     Dosage: UNK

REACTIONS (4)
  - Oesophageal disorder [Unknown]
  - Fall [Unknown]
  - Immunodeficiency [Not Recovered/Not Resolved]
  - Epistaxis [Unknown]
